FAERS Safety Report 7718039-7 (Version None)
Quarter: 2011Q3

REPORT INFORMATION
  Report Type: 
  Country: None (occurrence: None)
  Receive Date: 20110830
  Receipt Date: 20110706
  Transmission Date: 20111222
  Serious: No
  Sender: FDA-Public Use
  Company Number: US-AMGEN-USASP2011029257

PATIENT
  Age: 85 Year
  Sex: Female
  Weight: 49.887 kg

DRUGS (3)
  1. NPLATE [Suspect]
     Dosage: 0.2 A?G, QWK
     Route: 058
     Dates: start: 20110525
  2. NPLATE [Suspect]
     Dosage: 0.3 A?G, QWK
     Route: 058
     Dates: start: 20110602, end: 20110602
  3. NPLATE [Suspect]
     Indication: IDIOPATHIC THROMBOCYTOPENIC PURPURA
     Dosage: 0.1 A?G, QWK
     Route: 058
     Dates: start: 20110516

REACTIONS (6)
  - LETHARGY [None]
  - VOMITING [None]
  - ASTHENIA [None]
  - MIGRAINE [None]
  - EYE PAIN [None]
  - HEADACHE [None]
